FAERS Safety Report 6900060-X (Version None)
Quarter: 2010Q3

REPORT INFORMATION
  Report Type: 
  Country: None (occurrence: None)
  Receive Date: 20100708
  Receipt Date: 20100408
  Transmission Date: 20110219
  Serious: Yes (Other)
  Sender: FDA-Public Use
  Company Number: 2010035842

PATIENT
  Age: 24 Year
  Sex: Female
  Weight: 102 kg

DRUGS (6)
  1. CHANTIX [Suspect]
     Indication: SMOKING CESSATION THERAPY
     Dosage: 0.5 MG, 1X/DAY, ORAL; 1MG, 2X/DAY, ORAL
     Route: 048
     Dates: start: 20100301
  2. CHANTIX [Suspect]
     Indication: SMOKING CESSATION THERAPY
     Dosage: 0.5 MG, 1X/DAY, ORAL; 1MG, 2X/DAY, ORAL
     Route: 048
     Dates: start: 20100301
  3. LISINOPRIL [Concomitant]
  4. TOPIRAMATE [Concomitant]
  5. NORTRIPTYLINE HCL [Concomitant]
  6. CYCLOBENZAPRINE [Concomitant]

REACTIONS (2)
  - LYMPHADENOPATHY [None]
  - MOOD ALTERED [None]
